FAERS Safety Report 12550272 (Version 1)
Quarter: 2016Q3

REPORT INFORMATION
  Report Type: Spontaneous
  Country: DK (occurrence: FR)
  Receive Date: 20160712
  Receipt Date: 20160712
  Transmission Date: 20161109
  Serious: Yes (Hospitalization)
  Sender: FDA-Public Use
  Company Number: FR-FRI-1000086012

PATIENT
  Age: 89 Year
  Sex: Female

DRUGS (8)
  1. ESCITALOPRAM [Suspect]
     Active Substance: ESCITALOPRAM OXALATE
     Indication: DEPRESSION
     Dosage: 20 MG
     Route: 048
     Dates: start: 2014, end: 20160411
  2. DIFFU K [Concomitant]
     Active Substance: POTASSIUM CHLORIDE
  3. KARDEGIC [Suspect]
     Active Substance: ASPIRIN LYSINE
     Indication: VASCULAR DEVICE USER
     Dosage: 75 MG
     Route: 048
     Dates: start: 20150918, end: 20160331
  4. LASILIX [Concomitant]
     Active Substance: FUROSEMIDE
  5. CLOPIDOGREL [Suspect]
     Active Substance: CLOPIDOGREL BISULFATE
     Indication: VASCULAR DEVICE USER
     Dosage: 1 DF
     Route: 048
     Dates: start: 20150918
  6. EBIXA FILM-COATED TABLETS [Concomitant]
     Route: 065
  7. EUPANTOL [Concomitant]
     Active Substance: PANTOPRAZOLE SODIUM
  8. LEVOTHYROX [Concomitant]
     Active Substance: LEVOTHYROXINE

REACTIONS (1)
  - Iron deficiency anaemia [Recovered/Resolved]

NARRATIVE: CASE EVENT DATE: 20160325
